FAERS Safety Report 4855695-5 (Version None)
Quarter: 2005Q4

REPORT INFORMATION
  Report Type: 
  Country: None (occurrence: None)
  Receive Date: 20051216
  Receipt Date: 20051207
  Transmission Date: 20060501
  Serious: Yes (Other)
  Sender: FDA-Public Use
  Company Number: CA-ROCHE-427697

PATIENT
  Age: 20 Year
  Sex: Female

DRUGS (2)
  1. MEFLOQUINE HCL [Suspect]
     Indication: DRUG USE FOR UNKNOWN INDICATION
     Route: 048
  2. DOXYCYCLINE [Concomitant]
     Route: 048

REACTIONS (8)
  - AGGRESSION [None]
  - COGNITIVE DISORDER [None]
  - INSOMNIA [None]
  - IRRITABILITY [None]
  - LOGORRHOEA [None]
  - NEUROSIS [None]
  - PERSONALITY DISORDER [None]
  - THINKING ABNORMAL [None]
